FAERS Safety Report 11574342 (Version 1)
Quarter: 2015Q3

REPORT INFORMATION
  Report Type: Spontaneous
  Country: US (occurrence: US)
  Receive Date: 20150930
  Receipt Date: 20150930
  Transmission Date: 20151125
  Serious: No
  Sender: FDA-Public Use
  Company Number: US-ASTRAZENECA-2015SE90910

PATIENT
  Sex: Male

DRUGS (1)
  1. BYDUREON [Suspect]
     Active Substance: EXENATIDE
     Dosage: 2 MG 4 COUNT
     Route: 065

REACTIONS (5)
  - Injection site pain [Unknown]
  - Intentional device misuse [Unknown]
  - Device failure [Unknown]
  - Drug dose omission [Unknown]
  - Multiple use of single-use product [Unknown]
